FAERS Safety Report 19509505 (Version 2)
Quarter: 2021Q3

REPORT INFORMATION
  Report Type: Spontaneous
  Country: US (occurrence: US)
  Receive Date: 20210709
  Receipt Date: 20210817
  Transmission Date: 20211014
  Serious: Yes (Other)
  Sender: FDA-Public Use
  Company Number: US-JNJFOC-20210661360

PATIENT
  Sex: Female

DRUGS (14)
  1. AVEENO DAILY MOISTURIZING [Suspect]
     Active Substance: DIMETHICONE
     Route: 061
  2. AVEENO ABSOLUTELY AGELESS EYE CREAM [COSMETICS] [Suspect]
     Active Substance: COSMETICS
     Indication: PRODUCT USED FOR UNKNOWN INDICATION
     Route: 061
  3. AVEENO ABSOLUTELY AGELESS DAILY MOISTURIZER BROAD SPECTRUM SPF30 [Suspect]
     Active Substance: AVOBENZONE\HOMOSALATE\OCTISALATE\OCTOCRYLENE
     Indication: PRODUCT USED FOR UNKNOWN INDICATION
     Route: 061
  4. AVEENO DAILY MOISTURIZING [Suspect]
     Active Substance: DIMETHICONE
     Route: 061
  5. AVEENO POSITIVELY RADIANT BODY LOTION 12OZ [COSMETICS] [Suspect]
     Active Substance: COSMETICS
     Indication: PRODUCT USED FOR UNKNOWN INDICATION
     Route: 061
  6. AVEENO ABSOLUTELY AGELESSRESTORATIVE NIGHT CREAM [Suspect]
     Active Substance: COSMETICS
     Indication: PRODUCT USED FOR UNKNOWN INDICATION
     Route: 061
  7. AVEENO ABSOLUTELY AGELESS NOURISHING CLEANSER [COSMETICS] [Suspect]
     Active Substance: COSMETICS
     Indication: PRODUCT USED FOR UNKNOWN INDICATION
     Dosage: APPLIED LIBERALLY
     Route: 061
     Dates: start: 20210620, end: 202106
  8. AVEENO OAT MASK WITH PUMPKIN SEED EXTRACT [COSMETICS] [Suspect]
     Active Substance: COSMETICS
     Indication: PRODUCT USED FOR UNKNOWN INDICATION
     Route: 061
  9. AVEENO NOURISHING HAND MASK [COSMETICS] [Suspect]
     Active Substance: COSMETICS
     Indication: PRODUCT USED FOR UNKNOWN INDICATION
     Route: 061
  10. AVEENO DAILY MOISTURIZING [Suspect]
     Active Substance: DIMETHICONE
     Route: 061
  11. AVEENO REPAIRING CICA FOOT MASK [COSMETICS] [Suspect]
     Active Substance: COSMETICS
     Indication: PRODUCT USED FOR UNKNOWN INDICATION
     Route: 061
  12. AVEENO STRESS RELIEF MOISTURIZING LOTION [Suspect]
     Active Substance: COSMETICS
     Indication: PRODUCT USED FOR UNKNOWN INDICATION
     Route: 061
  13. AVEENO STRESS RELIEF MOISTURIZING LOTION [Suspect]
     Active Substance: COSMETICS
     Indication: PRODUCT USED FOR UNKNOWN INDICATION
     Route: 061
  14. AVEENO DAILY MOISTURIZING [Suspect]
     Active Substance: DIMETHICONE
     Indication: PRODUCT USED FOR UNKNOWN INDICATION
     Route: 061

REACTIONS (2)
  - Anaphylactic reaction [Recovered/Resolved]
  - Pharyngeal swelling [None]

NARRATIVE: CASE EVENT DATE: 20210625
